FAERS Safety Report 9394535 (Version 2)
Quarter: 2013Q3

REPORT INFORMATION
  Report Type: Report from Study
  Country: US (occurrence: US)
  Receive Date: 20130711
  Receipt Date: 20130917
  Transmission Date: 20140515
  Serious: Yes (Hospitalization)
  Sender: FDA-Public Use
  Company Number: PHEH2013US014508

PATIENT
  Sex: Male
  Weight: 89 kg

DRUGS (9)
  1. ZORTRESS [Suspect]
     Indication: LUNG TRANSPLANT
     Dosage: 1 MG, BID
     Route: 048
     Dates: start: 20130507
  2. ZORTRESS [Suspect]
     Dosage: 1.5 MG, BID
     Route: 048
     Dates: start: 20130620, end: 20130726
  3. ZORTRESS [Suspect]
     Dosage: UNK
  4. BACTRIM [Concomitant]
     Indication: LUNG TRANSPLANT
     Dosage: M-W-F
     Route: 048
  5. MUCINEX [Concomitant]
     Indication: LUNG TRANSPLANT
     Dosage: 1200 MG, BID
     Route: 048
     Dates: start: 20130816
  6. TACROLIMUS [Concomitant]
     Indication: LUNG TRANSPLANT
     Dosage: 2 MG, BID
     Route: 048
     Dates: start: 20130606
  7. LIPITOR [Concomitant]
     Indication: LUNG TRANSPLANT
     Dosage: 20 MG, QD
     Route: 048
     Dates: start: 20111201
  8. PREDNISONE [Concomitant]
     Indication: LUNG TRANSPLANT
     Dosage: 5 MG, QD
     Route: 048
     Dates: start: 20110802
  9. AMLODIPINE [Concomitant]
     Indication: LUNG TRANSPLANT
     Dosage: 5 MG, QD
     Route: 048
     Dates: start: 20110713

REACTIONS (1)
  - Gallbladder disorder [Unknown]
